FAERS Safety Report 9444052 (Version 1)
Quarter: 2013Q3

REPORT INFORMATION
  Report Type: Report from Study
  Country: US (occurrence: US)
  Receive Date: 20130807
  Receipt Date: 20130807
  Transmission Date: 20140515
  Serious: Yes (Other)
  Sender: FDA-Public Use
  Company Number: US-ROCHE-1256132

PATIENT
  Sex: 0

DRUGS (10)
  1. BEVACIZUMAB [Suspect]
     Indication: NEOPLASM MALIGNANT
     Dosage: ARM 2: ON DAYS 1 AND 15
     Route: 065
  2. BEVACIZUMAB [Suspect]
     Dosage: ARM 3: ON DAY 1 AND 15
     Route: 065
  3. BEVACIZUMAB [Suspect]
     Dosage: ARM 4 ON DAY 1
     Route: 065
  4. ERLOTINIB [Suspect]
     Indication: NEOPLASM MALIGNANT
     Dosage: DAILY ON 28 CYCLE
     Route: 048
  5. TRASTUZUMAB [Suspect]
     Indication: NEOPLASM MALIGNANT
     Dosage: LOADING
     Route: 065
  6. TRASTUZUMAB [Suspect]
     Dosage: MAINTENANCE
     Route: 065
  7. SORAFENIB [Suspect]
     Indication: NEOPLASM MALIGNANT
     Dosage: ON A 28 DAY CYCLE IN ARM 2
     Route: 065
  8. CETUXIMAB [Suspect]
     Indication: NEOPLASM MALIGNANT
     Dosage: ARM 3: LOADING
     Route: 065
  9. CETUXIMAB [Suspect]
     Dosage: ARM 3: MAINTENANCE
     Route: 065
  10. LAPATINIB [Suspect]
     Indication: NEOPLASM MALIGNANT
     Dosage: DAILY
     Route: 065

REACTIONS (5)
  - Hypertension [Unknown]
  - Palmar-plantar erythrodysaesthesia syndrome [Unknown]
  - Transaminases increased [Unknown]
  - Haemorrhage [Unknown]
  - Diarrhoea [Unknown]
